FAERS Safety Report 6655421-3 (Version None)
Quarter: 2010Q1

REPORT INFORMATION
  Report Type: 
  Country: None (occurrence: None)
  Receive Date: 20100329
  Receipt Date: 20100225
  Transmission Date: 20100710
  Serious: No
  Sender: FDA-Public Use
  Company Number: US-BAYER-201012626BCC

PATIENT
  Age: 77 Year
  Sex: Female
  Weight: 86 kg

DRUGS (4)
  1. ALEVE [Suspect]
     Indication: ARTHRALGIA
     Dosage: UNIT DOSE: 220 MG
     Route: 048
  2. TOPROL-XL [Concomitant]
     Route: 065
  3. MULTI-VITAMIN [Concomitant]
     Route: 065
  4. CALTRATE [Concomitant]
     Route: 065

REACTIONS (1)
  - ARTHRALGIA [None]
